FAERS Safety Report 24275253 (Version 1)
Quarter: 2024Q3

REPORT INFORMATION
  Report Type: Spontaneous
  Country: SE (occurrence: SE)
  Receive Date: 20240903
  Receipt Date: 20240903
  Transmission Date: 20241016
  Serious: Yes (Hospitalization, Other)
  Sender: NOVO NORDISK
  Company Number: SE-NOVOPROD-1273733

PATIENT
  Age: 64 Year
  Sex: Female
  Weight: 83 kg

DRUGS (4)
  1. OZEMPIC [Suspect]
     Active Substance: SEMAGLUTIDE
     Indication: Type 2 diabetes mellitus
     Dosage: UNK (FOLLOWED THE DOSE ESCALATION)
     Dates: start: 202311
  2. OZEMPIC [Suspect]
     Active Substance: SEMAGLUTIDE
     Dosage: 1 MG, QW
     Dates: end: 20240823
  3. SERTRALINE HYDROCHLORIDE [Concomitant]
     Active Substance: SERTRALINE HYDROCHLORIDE
     Indication: Product used for unknown indication
     Dosage: 100.00 MG, QD
  4. ATORVASTATIN [Concomitant]
     Active Substance: ATORVASTATIN
     Indication: Product used for unknown indication
     Dosage: 10 MG, QD

REACTIONS (1)
  - Optic nerve infarction [Not Recovered/Not Resolved]

NARRATIVE: CASE EVENT DATE: 20240701
